FAERS Safety Report 7027274-5 (Version None)
Quarter: 2010Q4

REPORT INFORMATION
  Report Type: 
  Country: None (occurrence: None)
  Receive Date: 20101004
  Receipt Date: 20100914
  Transmission Date: 20110411
  Serious: Yes (Hospitalization)
  Sender: FDA-Public Use
  Company Number: US-BAYER-201035489NA

PATIENT
  Age: 18 Year
  Sex: Female
  Weight: 100 kg

DRUGS (1)
  1. YAZ [Suspect]
     Indication: CONTRACEPTION
     Dates: start: 20090301, end: 20090506

REACTIONS (5)
  - ABDOMINAL PAIN [None]
  - CHOLELITHIASIS [None]
  - FLATULENCE [None]
  - PANCREATITIS [None]
  - RENAL FAILURE [None]
